FAERS Safety Report 7496634-0 (Version None)
Quarter: 2011Q2

REPORT INFORMATION
  Report Type: 
  Country: None (occurrence: None)
  Receive Date: 20110523
  Receipt Date: 20110512
  Transmission Date: 20111010
  Serious: Yes (Hospitalization)
  Sender: FDA-Public Use
  Company Number: A0771622A

PATIENT
  Age: 58 Year
  Sex: Male
  Weight: 62.7 kg

DRUGS (1)
  1. AVANDIA [Suspect]
     Indication: TYPE 2 DIABETES MELLITUS
     Dosage: 4MG PER DAY
     Route: 048
     Dates: start: 20060105, end: 20070210

REACTIONS (5)
  - PULMONARY HYPERTENSION [None]
  - CORONARY ARTERY DISEASE [None]
  - MYOCARDIAL INFARCTION [None]
  - BUNDLE BRANCH BLOCK [None]
  - ISCHAEMIC CARDIOMYOPATHY [None]
